FAERS Safety Report 16967596 (Version 2)
Quarter: 2019Q4

REPORT INFORMATION
  Report Type: Spontaneous
  Country: PT (occurrence: PT)
  Receive Date: 20191028
  Receipt Date: 20191106
  Transmission Date: 20200122
  Serious: Yes (Other)
  Sender: FDA-Public Use
  Company Number: PT-MYLANLABS-2019M1101393

PATIENT
  Age: 74 Year
  Sex: Female

DRUGS (2)
  1. SIMVASTATIN. [Suspect]
     Active Substance: SIMVASTATIN
     Indication: PRODUCT USED FOR UNKNOWN INDICATION
     Dosage: UNK
     Route: 065
  2. METFORMIN [Interacting]
     Active Substance: METFORMIN HYDROCHLORIDE
     Indication: DIABETES MELLITUS
     Dosage: UNK
     Route: 065

REACTIONS (7)
  - Helicobacter infection [Unknown]
  - Asthenia [Unknown]
  - Memory impairment [Unknown]
  - Disturbance in attention [Unknown]
  - Vitamin B12 deficiency [Unknown]
  - Chronic gastritis [Unknown]
  - Drug interaction [Unknown]
